FAERS Safety Report 13398796 (Version 1)
Quarter: 2017Q2

REPORT INFORMATION
  Report Type: Spontaneous
  Country: US (occurrence: US)
  Receive Date: 20170403
  Receipt Date: 20170403
  Transmission Date: 20170830
  Serious: Yes (Other)
  Sender: FDA-Public Use
  Company Number: PHHY2017US043654

PATIENT
  Age: 36 Year
  Sex: Female

DRUGS (2)
  1. DIGOXIN. [Suspect]
     Active Substance: DIGOXIN
     Indication: PRODUCT USED FOR UNKNOWN INDICATION
     Dosage: 375 UG, UNK
     Route: 037
  2. LIDOCAINE. [Suspect]
     Active Substance: LIDOCAINE
     Indication: PRODUCT USED FOR UNKNOWN INDICATION
     Dosage: UNK UNK, NO TREATMENT
     Route: 065

REACTIONS (6)
  - Maternal exposure during pregnancy [Unknown]
  - Unresponsive to stimuli [Unknown]
  - Muscular weakness [Unknown]
  - Wrong drug administered [Unknown]
  - Incorrect route of drug administration [Unknown]
  - Paresis [Unknown]
